FAERS Safety Report 4390713-2 (Version None)
Quarter: 2004Q3

REPORT INFORMATION
  Report Type: 
  Country: None (occurrence: None)
  Receive Date: 20040701
  Receipt Date: 20040621
  Transmission Date: 20050211
  Serious: Yes (Disabling)
  Sender: FDA-Public Use
  Company Number: 8291

PATIENT
  Age: 63 Year
  Sex: Male
  Weight: 57 kg

DRUGS (9)
  1. AMIODARONE HCL [Suspect]
     Indication: ATRIAL FIBRILLATION
     Dosage: 1 G DAILY PO
     Route: 048
     Dates: start: 20021225, end: 20030103
  2. AMIODARONE HCL [Suspect]
     Indication: ATRIAL FIBRILLATION
     Dosage: 200 MG DAILY PO
     Route: 048
     Dates: start: 20030104, end: 20030116
  3. SIMVASTATIN [Suspect]
     Dosage: 40 MG DAILY
     Dates: start: 20021212, end: 20030113
  4. PHENPROCOUMON [Suspect]
     Indication: ATRIAL FIBRILLATION
     Dates: start: 20021224, end: 20030116
  5. ASPIRIN [Concomitant]
  6. METOPROLOL [Concomitant]
  7. FUROSEMIDE [Concomitant]
  8. INSULIN [Concomitant]
  9. NITROGLYCERIN [Concomitant]

REACTIONS (13)
  - ANGINA PECTORIS [None]
  - ASPARTATE AMINOTRANSFERASE INCREASED [None]
  - ATRIAL FIBRILLATION [None]
  - BLOOD CREATINE PHOSPHOKINASE INCREASED [None]
  - BLOOD LACTATE DEHYDROGENASE INCREASED [None]
  - CORONARY ARTERY DISEASE [None]
  - DRUG INTERACTION [None]
  - FATIGUE [None]
  - HEMIPLEGIA [None]
  - MUSCULAR WEAKNESS [None]
  - MYALGIA [None]
  - MYOPATHY [None]
  - POST PROCEDURAL COMPLICATION [None]
